FAERS Safety Report 21058478 (Version 3)
Quarter: 2022Q3

REPORT INFORMATION
  Report Type: Report from Study
  Country: US (occurrence: US)
  Receive Date: 20220708
  Receipt Date: 20220810
  Transmission Date: 20221027
  Serious: No
  Sender: FDA-Public Use
  Company Number: US-NOVARTISTESTPH-NVSC2022US155352

PATIENT
  Sex: Male

DRUGS (1)
  1. TASIGNA [Suspect]
     Active Substance: NILOTINIB
     Indication: Product used for unknown indication
     Dosage: UNK
     Route: 048
     Dates: start: 202105

REACTIONS (5)
  - Rhinorrhoea [Unknown]
  - Weight increased [Unknown]
  - Constipation [Unknown]
  - Cytogenetic analysis abnormal [Unknown]
  - Product dose omission issue [Unknown]
